FAERS Safety Report 15566226 (Version 1)
Quarter: 2018Q4

REPORT INFORMATION
  Report Type: Spontaneous
  Country: JP (occurrence: JP)
  Receive Date: 20181030
  Receipt Date: 20181030
  Transmission Date: 20190205
  Serious: Yes (Hospitalization)
  Sender: FDA-Public Use
  Company Number: JP-DSJP-DSJ-2018-146088AA

PATIENT

DRUGS (4)
  1. CLOPIDOGREL [Suspect]
     Active Substance: CLOPIDOGREL BISULFATE
     Dosage: UNK
     Route: 048
  2. ATORVASTATIN                       /01326102/ [Suspect]
     Active Substance: ATORVASTATIN
     Dosage: UNK
     Route: 048
  3. REBAMIPIDE [Suspect]
     Active Substance: REBAMIPIDE
     Dosage: UNK
     Route: 048
  4. OLMETEC OD [Suspect]
     Active Substance: OLMESARTAN MEDOXOMIL
     Indication: HYPERTENSION
     Dosage: UNK
     Route: 048

REACTIONS (1)
  - Colitis microscopic [Recovering/Resolving]
